FAERS Safety Report 5840786-2 (Version None)
Quarter: 2008Q3

REPORT INFORMATION
  Report Type: 
  Country: None (occurrence: None)
  Receive Date: 20080730
  Receipt Date: 20080603
  Transmission Date: 20090109
  Serious: Yes (Other)
  Sender: FDA-Public Use
  Company Number: PHEH2008US04791

PATIENT
  Age: 79 Year
  Sex: Female

DRUGS (11)
  1. TEKTURNA [Suspect]
     Indication: HYPERTENSION
     Dosage: 150 MG, QD, ORAL
     Route: 048
     Dates: start: 20080304, end: 20080515
  2. DIOVAN [Suspect]
     Dosage: 160 MG, QD, ORAL
     Route: 048
     Dates: start: 20080508
  3. MACRIBID (NITROFURANTOIN) [Concomitant]
  4. ACTOS /USA/ (PIOGLITAZONE, PIOGLITAZONE HYDROCHLORIDE) [Concomitant]
  5. DARVOCET-N 100 [Concomitant]
  6. ATENOLOL [Concomitant]
  7. GEMFIBROZIL [Concomitant]
  8. ASPIRIN [Concomitant]
  9. FOSAMAX [Concomitant]
  10. MULTIVITAMINS (ASCORBIC ACID, ERGOCALCIFEROL, FOLIC ACID, NICOTINAMIDE [Concomitant]
  11. SYNTHROID [Concomitant]

REACTIONS (10)
  - ANION GAP DECREASED [None]
  - BLOOD CHLORIDE INCREASED [None]
  - BLOOD CREATININE INCREASED [None]
  - BLOOD GLUCOSE INCREASED [None]
  - BLOOD POTASSIUM INCREASED [None]
  - BLOOD UREA INCREASED [None]
  - BLOOD UREA NITROGEN/CREATININE RATIO INCREASED [None]
  - BRAIN NATRIURETIC PEPTIDE INCREASED [None]
  - GLOMERULAR FILTRATION RATE DECREASED [None]
  - HYPERKALAEMIA [None]
